FAERS Safety Report 23574359 (Version 4)
Quarter: 2024Q2

REPORT INFORMATION
  Report Type: Spontaneous
  Country: US (occurrence: None)
  Receive Date: 20240228
  Receipt Date: 20240515
  Transmission Date: 20240715
  Serious: Yes (Death, Hospitalization)
  Sender: FDA-Public Use
  Company Number: 2024A046306

PATIENT
  Age: 56 Year
  Sex: Female

DRUGS (2)
  1. TRUQAP [Suspect]
     Active Substance: CAPIVASERTIB
     Indication: Breast cancer metastatic
     Route: 048
     Dates: start: 20231208, end: 20240111
  2. FULVESTRANT [Concomitant]
     Active Substance: FULVESTRANT
     Dates: start: 20231207, end: 20231227

REACTIONS (3)
  - Diabetic ketoacidosis [Recovered/Resolved]
  - Malignant neoplasm progression [Fatal]
  - Hyperglycaemia [Recovered/Resolved]

NARRATIVE: CASE EVENT DATE: 20240111
